FAERS Safety Report 8186907-0 (Version None)
Quarter: 2012Q1

REPORT INFORMATION
  Report Type: 
  Country: None (occurrence: None)
  Receive Date: 20120306
  Receipt Date: 20120222
  Transmission Date: 20120608
  Serious: Yes (Other)
  Sender: FDA-Public Use
  Company Number: US-UCBSA-046267

PATIENT
  Age: 24 Year
  Sex: Female
  Weight: 81.6 kg

DRUGS (4)
  1. CIMZIA [Suspect]
     Indication: RHEUMATOID ARTHRITIS
     Route: 058
     Dates: start: 20110414, end: 20111116
  2. IBUPROFEN TABLETS [Concomitant]
     Indication: RHEUMATOID ARTHRITIS
     Route: 048
     Dates: start: 20100527
  3. VITAMIN D [Concomitant]
     Indication: MEDICAL DIET
     Dosage: 2000 UNITS, QD
     Route: 048
     Dates: start: 20100527
  4. IBUPROFEN TABLETS [Concomitant]
     Indication: PAIN
     Route: 048
     Dates: start: 20100527

REACTIONS (2)
  - ABORTION INDUCED [None]
  - PREGNANCY [None]
